FAERS Safety Report 6576465-6 (Version None)
Quarter: 2010Q1

REPORT INFORMATION
  Report Type: 
  Country: None (occurrence: None)
  Receive Date: 20100210
  Receipt Date: 20091023
  Transmission Date: 20100710
  Serious: No
  Sender: FDA-Public Use
  Company Number: A0813158A

PATIENT
  Age: 24 Year
  Sex: Female

DRUGS (4)
  1. ALTABAX [Suspect]
     Dosage: 1APP SINGLE DOSE
     Route: 061
     Dates: start: 20091019, end: 20091019
  2. TRIPLE ANTIBIOTIC CREAM [Concomitant]
     Route: 061
  3. VAGISIL [Concomitant]
  4. ANTIBIOTICS [Concomitant]
     Indication: APPENDICITIS
     Route: 042

REACTIONS (6)
  - APPLICATION SITE PAIN [None]
  - DRUG ADMINISTRATION ERROR [None]
  - SKIN DISORDER [None]
  - THERMAL BURN [None]
  - VAGINAL SWELLING [None]
  - VULVOVAGINAL ERYTHEMA [None]
